FAERS Safety Report 7218166-7 (Version None)
Quarter: 2011Q1

REPORT INFORMATION
  Report Type: 
  Country: None (occurrence: None)
  Receive Date: 20110110
  Receipt Date: 20110106
  Transmission Date: 20110831
  Serious: Yes (Death)
  Sender: FDA-Public Use
  Company Number: DE-ELI_LILLY_AND_COMPANY-DE201101001458

PATIENT
  Age: 73 Year
  Weight: 90 kg

DRUGS (6)
  1. PRASUGREL HYDROCHLORIDE [Suspect]
     Indication: ACUTE CORONARY SYNDROME
     Dosage: 60 MG, UNK
     Dates: start: 20100926
  2. HEPARIN [Concomitant]
  3. ASPISOL [Concomitant]
  4. PRASUGREL HYDROCHLORIDE [Suspect]
     Dosage: 100 MG, UNK
  5. ABCIXIMAB [Concomitant]
  6. ENOXAPARIN SODIUM [Concomitant]

REACTIONS (1)
  - CARDIOGENIC SHOCK [None]
